FAERS Safety Report 25761835 (Version 2)
Quarter: 2025Q3

REPORT INFORMATION
  Report Type: Spontaneous
  Country: US (occurrence: US)
  Receive Date: 20250904
  Receipt Date: 20250910
  Transmission Date: 20251020
  Serious: Yes (Other)
  Sender: NOVO NORDISK
  Company Number: US-NOVOPROD-1510398

PATIENT
  Age: 63 Year
  Sex: Female

DRUGS (1)
  1. OZEMPIC [Suspect]
     Active Substance: SEMAGLUTIDE
     Indication: Type 1 diabetes mellitus
     Dates: end: 20250501

REACTIONS (7)
  - Suicidal ideation [Unknown]
  - Hallucination [Unknown]
  - Urinary tract infection [Unknown]
  - Haemorrhage [Unknown]
  - Discoloured vomit [Unknown]
  - Pain [Unknown]
  - Product use in unapproved indication [Unknown]
